FAERS Safety Report 21883900 (Version 1)
Quarter: 2023Q1

REPORT INFORMATION
  Report Type: Spontaneous
  Country: GB (occurrence: None)
  Receive Date: 20230119
  Receipt Date: 20230119
  Transmission Date: 20230418
  Serious: Yes (Other)
  Sender: FDA-Public Use
  Company Number: 2023A008787

PATIENT
  Sex: Male
  Weight: 87 kg

DRUGS (10)
  1. DAPAGLIFLOZIN [Suspect]
     Active Substance: DAPAGLIFLOZIN
     Route: 048
     Dates: start: 20230104, end: 20230109
  2. AMLODIPINE [Concomitant]
     Active Substance: AMLODIPINE BESYLATE
     Indication: Hypertension
     Dosage: 1 EVERY DAY
     Route: 065
     Dates: start: 20220912
  3. ASPIRIN [Concomitant]
     Active Substance: ASPIRIN
     Dosage: 1WITH FOOD TO PROTECT YOUR HEART AND C...
     Route: 065
     Dates: start: 20220912
  4. ATORVASTATIN [Concomitant]
     Active Substance: ATORVASTATIN
     Dosage: 1 IN PLACE OF 20 MG TABLET TO HELP...
     Route: 065
     Dates: start: 20220912
  5. NITROGLYCERIN [Concomitant]
     Active Substance: NITROGLYCERIN
     Dosage: WHEN REQUIRED SPRAY 1 OR 2 PUFFS
     Route: 060
     Dates: start: 20220912
  6. LATANOPROST [Concomitant]
     Active Substance: LATANOPROST
     Dosage: 1 WIN BOTH EYES, AS DIRECTED
     Route: 065
     Dates: start: 20220912
  7. METFORMIN [Concomitant]
     Active Substance: METFORMIN HYDROCHLORIDE
     Indication: Type 2 diabetes mellitus
     Dosage: 2 TO HELP TO CONTROL...
     Route: 065
     Dates: start: 20220912
  8. INSULIN ASPART [Concomitant]
     Active Substance: INSULIN ASPART
     Dosage: 1 AS DIRECTED BY THE HOSPITAL TEA...
     Route: 065
     Dates: start: 20220912
  9. OMEPRAZOLE [Concomitant]
     Active Substance: OMEPRAZOLE
     Dosage: 1 TO PROTECT YOUR STOMACH FROM THE...
     Route: 065
     Dates: start: 20220912
  10. RAMIPRIL [Concomitant]
     Active Substance: RAMIPRIL
     Indication: Hypertension
     Dosage: 1 EACH MORNING FOR BLOOD PRESSURE AND TO PROT...
     Route: 065
     Dates: start: 20220912

REACTIONS (1)
  - Lip swelling [Recovered/Resolved]

NARRATIVE: CASE EVENT DATE: 20230107
